FAERS Safety Report 6149548-2 (Version None)
Quarter: 2009Q2

REPORT INFORMATION
  Report Type: 
  Country: None (occurrence: None)
  Receive Date: 20090409
  Receipt Date: 20090403
  Transmission Date: 20091009
  Serious: Yes (Other)
  Sender: FDA-Public Use
  Company Number: PHEH2006US00792

PATIENT
  Sex: Female
  Weight: 68.027 kg

DRUGS (17)
  1. ZOMETA [Suspect]
     Dosage: 4 MG, QD
     Dates: end: 20040422
  2. ZOMETA [Suspect]
     Dosage: 4 MG, QD
     Dates: end: 20051007
  3. FEMARA [Suspect]
     Dosage: 2.5 MG, QD
  4. TAXOTERE [Concomitant]
     Dosage: 52 MG, UNK
     Route: 042
     Dates: start: 20040830, end: 20041019
  5. KYTRIL [Concomitant]
     Dates: start: 20050405
  6. AMOXICILLIN [Concomitant]
     Dates: start: 20050325
  7. GEMZAR [Concomitant]
     Dosage: 1750-1780MG
     Route: 042
     Dates: start: 20050701, end: 20051021
  8. GEMZAR [Concomitant]
     Dosage: 1750-1790MG
     Route: 042
     Dates: start: 20050128, end: 20050617
  9. CLEOCIN [Concomitant]
     Dosage: 300 MG, UNK
     Dates: start: 20050901
  10. CELEXA [Concomitant]
  11. SYNTHROID [Concomitant]
  12. NAVELBINE [Concomitant]
  13. AMBIEN [Concomitant]
  14. MORPHINE [Concomitant]
  15. MILK OF MAGNESIA [Concomitant]
  16. MOTRIN [Concomitant]
     Dosage: 600 MG Q6HRS PRN
  17. PHENERGAN ^AVENTIS PHARMA^ [Concomitant]

REACTIONS (22)
  - ALANINE AMINOTRANSFERASE INCREASED [None]
  - ALVEOLOPLASTY [None]
  - ASPARTATE AMINOTRANSFERASE INCREASED [None]
  - BONE DISORDER [None]
  - BREATH ODOUR [None]
  - CENTRAL VENOUS CATHETERISATION [None]
  - DENTAL CARE [None]
  - DENTAL OPERATION [None]
  - GINGIVAL DISORDER [None]
  - GINGIVAL PAIN [None]
  - HIP ARTHROPLASTY [None]
  - HIP FRACTURE [None]
  - HYPOAESTHESIA [None]
  - IMPAIRED HEALING [None]
  - METASTASES TO BONE [None]
  - ORAL PAIN [None]
  - OSTEONECROSIS [None]
  - PARAESTHESIA [None]
  - SALPINGO-OOPHORECTOMY BILATERAL [None]
  - SWELLING [None]
  - TOOTH ABSCESS [None]
  - TOOTH EXTRACTION [None]
